FAERS Safety Report 25366221 (Version 1)
Quarter: 2025Q2

REPORT INFORMATION
  Report Type: Spontaneous
  Country: FR (occurrence: FR)
  Receive Date: 20250528
  Receipt Date: 20250528
  Transmission Date: 20250717
  Serious: Yes (Hospitalization)
  Sender: JOHNSON AND JOHNSON
  Company Number: None

PATIENT
  Age: 88 Year
  Sex: Female

DRUGS (1)
  1. XARELTO [Suspect]
     Active Substance: RIVAROXABAN
     Indication: Atrial fibrillation
     Dosage: 1 DF, QD
     Route: 048
     Dates: end: 20250428

REACTIONS (2)
  - Cerebral haemorrhage [Recovering/Resolving]
  - Hemiataxia [Recovering/Resolving]

NARRATIVE: CASE EVENT DATE: 20250428
